FAERS Safety Report 19728255 (Version 1)
Quarter: 2021Q3

REPORT INFORMATION
  Report Type: Spontaneous
  Country: GB (occurrence: GB)
  Receive Date: 20210820
  Receipt Date: 20210820
  Transmission Date: 20211014
  Serious: Yes (Other)
  Sender: FDA-Public Use
  Company Number: GB-BAYER-2021-194314

PATIENT
  Age: 46 Year
  Sex: Female
  Weight: 81.64 kg

DRUGS (2)
  1. MIRENA [Suspect]
     Active Substance: LEVONORGESTREL
     Indication: CONTRACEPTION
     Dosage: 20 ?G, CONT
     Route: 015
     Dates: start: 20201117, end: 20210808
  2. VENLALIC [Concomitant]
     Active Substance: VENLAFAXINE HYDROCHLORIDE
     Indication: ILL-DEFINED DISORDER

REACTIONS (8)
  - Acne [Recovering/Resolving]
  - Device monitoring procedure not performed [Recovered/Resolved]
  - Device placement issue [Unknown]
  - Vaginal haemorrhage [Recovered/Resolved]
  - Abdominal distension [Not Recovered/Not Resolved]
  - Weight increased [Not Recovered/Not Resolved]
  - Binge eating [Recovering/Resolving]
  - Hair growth abnormal [Not Recovered/Not Resolved]

NARRATIVE: CASE EVENT DATE: 20201117
